FAERS Safety Report 15488553 (Version 3)
Quarter: 2018Q4

REPORT INFORMATION
  Report Type: Report from Study
  Country: US (occurrence: US)
  Receive Date: 20181011
  Receipt Date: 20181031
  Transmission Date: 20190205
  Serious: Yes (Hospitalization, Other)
  Sender: FDA-Public Use
  Company Number: US-AEGERION PHARMACEUTICAL, INC-AEGR004002

PATIENT
  Age: 20 Year
  Sex: Female
  Weight: 51.25 kg

DRUGS (4)
  1. MYALEPT [Suspect]
     Active Substance: METRELEPTIN
     Indication: LIPODYSTROPHY ACQUIRED
     Dosage: 5 MG, EVERY 12 HRS
     Route: 030
     Dates: start: 201401, end: 201810
  2. METFORMIN [Concomitant]
     Active Substance: METFORMIN HYDROCHLORIDE
     Indication: PRODUCT USED FOR UNKNOWN INDICATION
     Dosage: 1000 MG, UNK
  3. MYALEPT [Suspect]
     Active Substance: METRELEPTIN
     Indication: PARTIAL LIPODYSTROPHY
     Dosage: 5 MG, EVEY 12 HOURS
     Route: 058
     Dates: start: 201810
  4. TRICOR                             /00090101/ [Concomitant]
     Active Substance: ADENOSINE
     Indication: PRODUCT USED FOR UNKNOWN INDICATION
     Dosage: 145 MG, UNK

REACTIONS (16)
  - Abdominal pain upper [Unknown]
  - Product dose omission [Unknown]
  - Stress [Unknown]
  - Product storage error [Unknown]
  - Feeling cold [Not Recovered/Not Resolved]
  - Hyperphagia [Unknown]
  - Nausea [Unknown]
  - Incorrect product formulation administered [Unknown]
  - Pancreatitis [Recovered/Resolved]
  - Feeling abnormal [Not Recovered/Not Resolved]
  - Anxiety [Unknown]
  - Product preparation error [Unknown]
  - Headache [Unknown]
  - Treatment noncompliance [Unknown]
  - Decreased appetite [Recovering/Resolving]
  - Therapy cessation [Recovered/Resolved]

NARRATIVE: CASE EVENT DATE: 20180929
